FAERS Safety Report 9424181 (Version 2)
Quarter: 2013Q4

REPORT INFORMATION
  Report Type: Report from Study
  Country: CA (occurrence: CA)
  Receive Date: 20130729
  Receipt Date: 20131016
  Transmission Date: 20140711
  Serious: Yes (Death)
  Sender: FDA-Public Use
  Company Number: PHHY2013CA080033

PATIENT
  Age: 74 Year
  Sex: Female

DRUGS (14)
  1. CLOZARIL [Suspect]
     Indication: BIPOLAR DISORDER
     Dosage: UNK
     Dates: start: 19990316
  2. CLOZARIL [Suspect]
     Dosage: 25 MG, TID
     Route: 048
     Dates: start: 200806
  3. SPIRONOLACTONE [Concomitant]
     Dosage: 12.5 MG, DAILY
  4. TETRACYCLINE [Concomitant]
     Dosage: 500 MG, TID
  5. TYLENOL [Concomitant]
     Dosage: UNK
  6. LAMOTRIGINE [Concomitant]
     Dosage: 25 MG, TWICE DAILY
  7. LEVOTHYROXINE [Concomitant]
     Dosage: 125 UG, DAILY
  8. RANITIDINE [Concomitant]
     Dosage: 150 MG, TWICE DAILY
  9. BUDESONIDE [Concomitant]
     Dosage: 1 DF, BID
  10. IPRATROPIUM [Concomitant]
     Dosage: 0.25 MG, DAILY
  11. LACTULOSE [Concomitant]
     Dosage: 1 DF, BID
  12. PSYLLIUM [Concomitant]
     Dosage: UNK UKN, UNK
  13. SALBUTAMOL [Concomitant]
     Dosage: UNK UKN, UNK
  14. VALPROIC ACID [Concomitant]
     Dosage: 500 MG, TWICE DAILY

REACTIONS (1)
  - Death [Fatal]
